FAERS Safety Report 20484404 (Version 1)
Quarter: 2022Q1

REPORT INFORMATION
  Report Type: Spontaneous
  Country: SE (occurrence: SE)
  Receive Date: 20220217
  Receipt Date: 20220217
  Transmission Date: 20220423
  Serious: Yes (Hospitalization, Disabling, Other)
  Sender: FDA-Public Use
  Company Number: None

PATIENT
  Age: 39 Year
  Sex: Female
  Weight: 65 kg

DRUGS (5)
  1. VENLAFAXINE HCL [Suspect]
     Active Substance: VENLAFAXINE HYDROCHLORIDE
     Indication: Burnout syndrome
     Dosage: 150 MG, 1X/DAY
     Route: 048
     Dates: start: 20121001
  2. VENLAFAXINE HCL [Suspect]
     Active Substance: VENLAFAXINE HYDROCHLORIDE
     Dosage: 75 MG, 1X/DAY
     Route: 048
  3. VENLAFAXINE HCL [Suspect]
     Active Substance: VENLAFAXINE HYDROCHLORIDE
     Dosage: 37.5 MG, 1X/DAY
     Route: 048
  4. NAPROXEN EBB [Concomitant]
     Dosage: 500 MG
     Route: 048
     Dates: start: 19760101
  5. NAPROXEN EBB [Concomitant]
     Dosage: 500 MG
     Route: 048

REACTIONS (13)
  - Pyrexia [Recovering/Resolving]
  - Nausea [Recovering/Resolving]
  - Respiratory distress [Recovering/Resolving]
  - Malaise [Recovering/Resolving]
  - Memory impairment [Recovering/Resolving]
  - Depression [Unknown]
  - Confusional state [Recovering/Resolving]
  - Dizziness [Recovering/Resolving]
  - Photopsia [Unknown]
  - Fatigue [Unknown]
  - Hypertension [Recovering/Resolving]
  - Vision blurred [Unknown]
  - Herpes simplex meningitis [Unknown]

NARRATIVE: CASE EVENT DATE: 20121001
